FAERS Safety Report 7925191 (Version 4)
Quarter: 2013Q1

REPORT INFORMATION
  Report Type: Spontaneous
  Country: US (occurrence: US)
  Receive Date: 20110502
  Receipt Date: 20130222
  Transmission Date: 20140127
  Serious: No
  Sender: FDA-Public Use
  Company Number: US-ASTRAZENECA-2010SE28451

PATIENT
  Age: 80 Year
  Sex: Female

DRUGS (4)
  1. NEXIUM [Suspect]
     Route: 048
  2. EVISTA [Concomitant]
  3. DETROL [Concomitant]
  4. SYNTHROID [Concomitant]

REACTIONS (9)
  - Adverse event [Unknown]
  - Chest pain [Unknown]
  - Dental caries [Unknown]
  - Dyspepsia [Unknown]
  - Gastrooesophageal reflux disease [Unknown]
  - Weight decreased [Unknown]
  - Malaise [Unknown]
  - Drug dose omission [Unknown]
  - Intentional drug misuse [Unknown]
